FAERS Safety Report 4900371-3 (Version None)
Quarter: 2006Q1

REPORT INFORMATION
  Report Type: 
  Country: None (occurrence: None)
  Receive Date: 20060201
  Receipt Date: 20060112
  Transmission Date: 20060701
  Serious: Yes (Death)
  Sender: FDA-Public Use
  Company Number: US200601002154

PATIENT
  Age: 87 Year
  Sex: Female

DRUGS (2)
  1. FORTEO [Suspect]
     Indication: OSTEOPOROSIS
     Dates: start: 20040801, end: 20050823
  2. FORTEO [Concomitant]

REACTIONS (5)
  - GASTROINTESTINAL CARCINOMA [None]
  - INTESTINAL OBSTRUCTION [None]
  - MULTIPLE FRACTURES [None]
  - MUSCLE SPASMS [None]
  - REFUSAL OF TREATMENT BY PATIENT [None]
